FAERS Safety Report 12339094 (Version 1)
Quarter: 2016Q2

REPORT INFORMATION
  Report Type: Spontaneous
  Country: US (occurrence: US)
  Receive Date: 20160505
  Receipt Date: 20160505
  Transmission Date: 20160815
  Serious: No
  Sender: FDA-Public Use
  Company Number: US-MAYNE PHARMA-2015MYN000049

PATIENT
  Sex: Female
  Weight: 72.56 kg

DRUGS (2)
  1. SYNTHROID [Concomitant]
     Active Substance: LEVOTHYROXINE SODIUM
     Dosage: UNK
     Dates: start: 2013
  2. LIOTHYRONINE [Suspect]
     Active Substance: LIOTHYRONINE
     Indication: AUTOIMMUNE THYROIDITIS
     Dosage: 50 MCG, BID
     Route: 048
     Dates: start: 2013

REACTIONS (2)
  - Product difficult to swallow [Not Recovered/Not Resolved]
  - Abdominal pain [Not Recovered/Not Resolved]
